FAERS Safety Report 4564860-6 (Version None)
Quarter: 2005Q1

REPORT INFORMATION
  Report Type: 
  Country: None (occurrence: None)
  Receive Date: 20050128
  Receipt Date: 20050118
  Transmission Date: 20050727
  Serious: Yes (Hospitalization)
  Sender: FDA-Public Use
  Company Number: JP-MERCK-0501USA03397

PATIENT
  Age: 85 Year
  Sex: Female

DRUGS (6)
  1. NOROXIN [Suspect]
     Indication: GASTROENTERITIS
     Route: 048
     Dates: start: 20041225, end: 20041227
  2. NORVASC [Concomitant]
     Route: 048
     Dates: start: 19980317
  3. LIPITOR [Concomitant]
     Route: 048
     Dates: start: 20031021
  4. DIGESTIVE ENZYMES [Concomitant]
     Route: 048
     Dates: start: 20041225, end: 20041227
  5. LAC-B [Concomitant]
     Route: 048
     Dates: start: 20041225, end: 20041227
  6. TRIMEBUTINE MALEATE [Concomitant]
     Route: 048
     Dates: start: 20041225, end: 20041227

REACTIONS (5)
  - ANOREXIA [None]
  - HEPATITIS [None]
  - JAUNDICE [None]
  - LIVER DISORDER [None]
  - URINE ABNORMALITY [None]
